FAERS Safety Report 5258918-6 (Version None)
Quarter: 2007Q1

REPORT INFORMATION
  Report Type: 
  Country: None (occurrence: None)
  Receive Date: 20061117
  Receipt Date: 20060404
  Transmission Date: 20070707
  Serious: Yes (Disabling, Other)
  Sender: FDA-Public Use
  Company Number: US-JNJFOC-20060103915

PATIENT
  Age: 53 Year
  Sex: Female
  Weight: 86.1834 kg

DRUGS (8)
  1. LEVAQUIN [Suspect]
     Indication: SINUSITIS
     Dosage: 500 MG, 1 IN 1 DAY, ORAL
     Route: 048
     Dates: start: 20051202, end: 20051208
  2. TOPROL-XL [Concomitant]
  3. MULTI-VITAMINS [Concomitant]
  4. MAGNESIUM (MAGNESIUM) [Concomitant]
  5. CALCIUM (CALCIUM) [Concomitant]
  6. FOLIC ACID [Concomitant]
  7. MSM (METHYLSULFONAL) [Concomitant]
  8. LISINOPRIL [Concomitant]

REACTIONS (6)
  - HYPERGLYCAEMIA [None]
  - JOINT EFFUSION [None]
  - MUSCLE SPASMS [None]
  - MUSCULAR WEAKNESS [None]
  - PARAESTHESIA [None]
  - RHEUMATOID FACTOR [None]
